FAERS Safety Report 15942350 (Version 7)
Quarter: 2019Q3

REPORT INFORMATION
  Report Type: Report from Study
  Country: FR (occurrence: FR)
  Receive Date: 20190210
  Receipt Date: 20190920
  Transmission Date: 20191004
  Serious: Yes (Hospitalization, Other)
  Sender: FDA-Public Use
  Company Number: PHHY2018FR036600

PATIENT
  Age: 65 Year
  Sex: Female
  Weight: 67 kg

DRUGS (25)
  1. ADOPORT [Suspect]
     Active Substance: TACROLIMUS
     Dosage: 8 MG, UNK
     Route: 048
     Dates: start: 20180609, end: 20180620
  2. ADOPORT [Suspect]
     Active Substance: TACROLIMUS
     Dosage: 8 MG, UNK
     Route: 048
     Dates: start: 20180517, end: 20180519
  3. ADOPORT [Suspect]
     Active Substance: TACROLIMUS
     Dosage: 10 MG, UNK
     Route: 048
     Dates: start: 20180625, end: 20180718
  4. ADOPORT [Suspect]
     Active Substance: TACROLIMUS
     Dosage: 8 MG, UNK
     Route: 048
     Dates: start: 20180718, end: 20180731
  5. ADOPORT [Suspect]
     Active Substance: TACROLIMUS
     Dosage: 8 MG, UNK
     Route: 048
     Dates: start: 20181128
  6. BACTRIM [Concomitant]
     Active Substance: SULFAMETHOXAZOLE\TRIMETHOPRIM
     Indication: PRODUCT USED FOR UNKNOWN INDICATION
     Dosage: UNK
     Route: 065
     Dates: start: 20180522
  7. CORTANCYL [Concomitant]
     Active Substance: PREDNISONE
     Indication: PRODUCT USED FOR UNKNOWN INDICATION
     Dosage: UNK
     Route: 065
     Dates: start: 20180520
  8. VALGANCICLOVIR. [Concomitant]
     Active Substance: VALGANCICLOVIR
     Indication: PRODUCT USED FOR UNKNOWN INDICATION
     Dosage: UNK
     Route: 065
     Dates: start: 20180517
  9. ADOPORT [Suspect]
     Active Substance: TACROLIMUS
     Indication: RENAL TRANSPLANT
     Dosage: 8 MG, UNK
     Route: 048
     Dates: start: 20180515, end: 20180516
  10. ADOPORT [Suspect]
     Active Substance: TACROLIMUS
     Dosage: 14 MG, UNK
     Route: 048
     Dates: start: 20180516, end: 20180517
  11. ADOPORT [Suspect]
     Active Substance: TACROLIMUS
     Dosage: 14 MG, UNK
     Route: 048
     Dates: start: 20180520, end: 20180523
  12. ADOPORT [Suspect]
     Active Substance: TACROLIMUS
     Dosage: 10 MG, UNK
     Route: 048
     Dates: start: 20180530, end: 20180609
  13. ADOPORT [Suspect]
     Active Substance: TACROLIMUS
     Dosage: 6 MG, UNK
     Route: 048
     Dates: start: 20180620, end: 20180625
  14. ARANESP [Concomitant]
     Active Substance: DARBEPOETIN ALFA
     Indication: PRODUCT USED FOR UNKNOWN INDICATION
     Dosage: UNK
     Route: 065
     Dates: start: 20180516
  15. ROVALCYTE [Concomitant]
     Active Substance: VALGANCICLOVIR HYDROCHLORIDE
     Indication: PRODUCT USED FOR UNKNOWN INDICATION
     Route: 065
  16. DARBEPOETINA ALFA [Concomitant]
     Indication: PRODUCT USED FOR UNKNOWN INDICATION
     Dosage: UNK
     Route: 065
     Dates: start: 20180516
  17. ADOPORT [Suspect]
     Active Substance: TACROLIMUS
     Dosage: 16 MG, UNK
     Route: 048
     Dates: start: 20180523, end: 20180524
  18. ADOPORT [Suspect]
     Active Substance: TACROLIMUS
     Dosage: 18 MG, UNK
     Route: 048
     Dates: start: 20180524, end: 20180530
  19. INSULINE [Concomitant]
     Active Substance: INSULIN NOS
     Indication: PRODUCT USED FOR UNKNOWN INDICATION
     Dosage: UNK
     Route: 065
     Dates: start: 20180517
  20. ADOPORT [Suspect]
     Active Substance: TACROLIMUS
     Dosage: 10 MG, UNK
     Route: 048
     Dates: start: 20180731, end: 20180822
  21. MYFORTIC [Concomitant]
     Active Substance: MYCOPHENOLATE SODIUM
     Indication: PRODUCT USED FOR UNKNOWN INDICATION
     Dosage: UNK
     Route: 065
     Dates: start: 20180515
  22. ENVARSUS XR [Concomitant]
     Active Substance: TACROLIMUS
     Indication: PRODUCT USED FOR UNKNOWN INDICATION
     Dosage: UNK
     Route: 065
     Dates: start: 20181128
  23. ADOPORT [Suspect]
     Active Substance: TACROLIMUS
     Dosage: 9 MG, UNK
     Route: 048
     Dates: start: 20180519, end: 20180520
  24. ADOPORT [Suspect]
     Active Substance: TACROLIMUS
     Dosage: 8 MG, UNK
     Route: 048
     Dates: start: 20180822, end: 20181127
  25. BICARBONATE SODIUM [Concomitant]
     Active Substance: SODIUM BICARBONATE
     Indication: PRODUCT USED FOR UNKNOWN INDICATION
     Dosage: UNK
     Route: 065
     Dates: start: 20180517

REACTIONS (8)
  - Weight increased [Unknown]
  - Renal impairment [Recovering/Resolving]
  - Muscle spasms [Recovered/Resolved]
  - Oedema peripheral [Recovered/Resolved]
  - Lip oedema [Recovered/Resolved]
  - Asthenia [Not Recovered/Not Resolved]
  - Gastrooesophageal reflux disease [Recovered/Resolved]
  - Leukopenia [Not Recovered/Not Resolved]

NARRATIVE: CASE EVENT DATE: 20180604
